FAERS Safety Report 25889209 (Version 2)
Quarter: 2025Q4

REPORT INFORMATION
  Report Type: Spontaneous
  Country: SG (occurrence: SG)
  Receive Date: 20251007
  Receipt Date: 20251015
  Transmission Date: 20260117
  Serious: Yes (Other)
  Sender: ABBVIE
  Company Number: SG-ABBVIE-6489709

PATIENT
  Age: 30 Year
  Sex: Male

DRUGS (3)
  1. RINVOQ [Suspect]
     Active Substance: UPADACITINIB
     Indication: Dermatitis atopic
     Route: 048
     Dates: start: 20250718, end: 20251001
  2. HEPTRAL [Concomitant]
     Active Substance: ADEMETIONINE
     Indication: Product used for unknown indication
  3. VITAMIN D [Concomitant]
     Active Substance: VITAMIN D NOS
     Indication: Product used for unknown indication

REACTIONS (7)
  - Inflammation [Recovered/Resolved]
  - Liver function test abnormal [Recovered/Resolved]
  - Hepatic steatosis [Recovered/Resolved]
  - Hepatic fibrosis [Recovered/Resolved]
  - Vitamin D deficiency [Unknown]
  - Cholelithiasis [Unknown]
  - Suspected drug-induced liver injury [Unknown]

NARRATIVE: CASE EVENT DATE: 20251001
